FAERS Safety Report 21500673 (Version 2)
Quarter: 2022Q4

REPORT INFORMATION
  Report Type: Spontaneous
  Country: TW (occurrence: None)
  Receive Date: 20221025
  Receipt Date: 20221028
  Transmission Date: 20230112
  Serious: Yes (Other)
  Sender: FDA-Public Use
  Company Number: TW-ROCHE-3203970

PATIENT
  Age: 55 Year
  Sex: Male

DRUGS (3)
  1. ATEZOLIZUMAB [Suspect]
     Active Substance: ATEZOLIZUMAB
     Indication: Hepatocellular carcinoma
     Dosage: ON 28/JUN/2022, 05/JUL/2022, PATIENT HAD SUBSEQUENT DOSE OF ATEZOLIZUMAB WAS ADMINISTERED.
     Route: 065
     Dates: start: 20220530
  2. BEVACIZUMAB [Suspect]
     Active Substance: BEVACIZUMAB
     Indication: Hepatocellular carcinoma
     Dosage: ON 28/JUN/2022, 05/JUL/2022, PATIENT HAD SUBSEQUENT DOSE OF BEVACIZUMAB WAS ADMINISTERED.
     Route: 065
     Dates: start: 20220530
  3. CEFTRIAXONE [Suspect]
     Active Substance: CEFTRIAXONE
     Indication: Product used for unknown indication
     Route: 065
     Dates: start: 20220720

REACTIONS (7)
  - Encephalitis [Unknown]
  - Hyperthyroidism [Unknown]
  - Altered state of consciousness [Unknown]
  - Asthenia [Unknown]
  - Nausea [Unknown]
  - Vomiting [Unknown]
  - Hyperthyroidism [Unknown]
